FAERS Safety Report 12863661 (Version 4)
Quarter: 2021Q3

REPORT INFORMATION
  Report Type: Report from Study
  Country: None (occurrence: CA)
  Receive Date: 20161019
  Receipt Date: 20210930
  Transmission Date: 20211014
  Serious: Yes (Death, Other)
  Sender: FDA-Public Use
  Company Number: CA-ABBVIE-16P-028-1756968-00

PATIENT
  Age: 67 Year
  Sex: Male
  Weight: 79.5 kg

DRUGS (4)
  1. LUPRON DEPOT [Suspect]
     Active Substance: LEUPROLIDE ACETATE
     Indication: PROSTATE CANCER
     Route: 030
     Dates: start: 20160204
  2. FOSAMAX [Concomitant]
     Active Substance: ALENDRONATE SODIUM
     Indication: PROPHYLAXIS
     Route: 048
     Dates: start: 20160116
  3. CALCIUM + VITAMIN D [Concomitant]
     Active Substance: CALCIUM\VITAMIN D
     Indication: PROPHYLAXIS
     Route: 048
     Dates: start: 20160114
  4. FOSAMAX [Concomitant]
     Active Substance: ALENDRONATE SODIUM
     Indication: PROPHYLAXIS

REACTIONS (15)
  - Back pain [Recovered/Resolved]
  - Insomnia [Unknown]
  - Hydronephrosis [Not Recovered/Not Resolved]
  - Metastases to bone [Not Recovered/Not Resolved]
  - Nausea [Unknown]
  - Bladder neoplasm [Unknown]
  - Vomiting [Unknown]
  - Bladder stenosis [Unknown]
  - Constipation [Unknown]
  - Prostate cancer [Fatal]
  - Renal atrophy [Unknown]
  - Hypercholesterolaemia [Unknown]
  - Prostate cancer [Unknown]
  - Arteriosclerosis [Unknown]
  - Malaise [Unknown]

NARRATIVE: CASE EVENT DATE: 201607
